FAERS Safety Report 6767751-5 (Version None)
Quarter: 2010Q2

REPORT INFORMATION
  Report Type: 
  Country: None (occurrence: None)
  Receive Date: 20100614
  Receipt Date: 20100610
  Transmission Date: 20101027
  Serious: Yes (Other)
  Sender: FDA-Public Use
  Company Number: JP-ROCHE-703383

PATIENT
  Sex: Female
  Weight: 51 kg

DRUGS (2)
  1. OSELTAMIVIR [Suspect]
     Indication: INFLUENZA
     Route: 048
     Dates: start: 20100105, end: 20100109
  2. ALESION [Concomitant]
     Dosage: 10-20MG/2-3 DAY
     Route: 048
     Dates: start: 20100210, end: 20100320

REACTIONS (2)
  - ABORTION SPONTANEOUS [None]
  - DRUG EXPOSURE BEFORE PREGNANCY [None]
